FAERS Safety Report 11195859 (Version 1)
Quarter: 2015Q2

REPORT INFORMATION
  Report Type: Spontaneous
  Country: VE (occurrence: VE)
  Receive Date: 20150617
  Receipt Date: 20150617
  Transmission Date: 20150821
  Serious: Yes (Disabling, Other)
  Sender: FDA-Public Use
  Company Number: VE-JNJFOC-20150611993

PATIENT
  Age: 71 Year
  Sex: Male

DRUGS (2)
  1. XARELTO [Suspect]
     Active Substance: RIVAROXABAN
     Indication: DEEP VEIN THROMBOSIS
     Route: 048
     Dates: start: 20150404
  2. XARELTO [Suspect]
     Active Substance: RIVAROXABAN
     Indication: EMBOLISM VENOUS
     Route: 048
     Dates: start: 20150404

REACTIONS (4)
  - Cerebrovascular accident [Unknown]
  - Mobility decreased [Not Recovered/Not Resolved]
  - Intracardiac thrombus [Unknown]
  - Masked facies [Not Recovered/Not Resolved]

NARRATIVE: CASE EVENT DATE: 20150515
